FAERS Safety Report 11120942 (Version 2)
Quarter: 2015Q2

REPORT INFORMATION
  Report Type: Spontaneous
  Country: BR (occurrence: BR)
  Receive Date: 20150519
  Receipt Date: 20150526
  Transmission Date: 20150821
  Serious: Yes (Other)
  Sender: FDA-Public Use
  Company Number: BR-ROCHE-1577444

PATIENT
  Sex: Female
  Weight: 65 kg

DRUGS (2)
  1. MABTHERA [Suspect]
     Active Substance: RITUXIMAB
     Dosage: SECOND DOSE
     Route: 065
     Dates: start: 201402
  2. MABTHERA [Suspect]
     Active Substance: RITUXIMAB
     Indication: JUVENILE IDIOPATHIC ARTHRITIS
     Dosage: FIRST DOSE
     Route: 065
     Dates: start: 201302

REACTIONS (3)
  - Triple negative breast cancer [Not Recovered/Not Resolved]
  - Hypersensitivity [Recovered/Resolved]
  - Lower extremity mass [Unknown]
